FAERS Safety Report 7932997-7 (Version None)
Quarter: 2011Q4

REPORT INFORMATION
  Report Type: 
  Country: None (occurrence: None)
  Receive Date: 20111122
  Receipt Date: 20111115
  Transmission Date: 20120403
  Serious: Yes (Hospitalization)
  Sender: FDA-Public Use
  Company Number: FR-JNJFOC-20111108215

PATIENT
  Age: 51 Year
  Sex: Female
  Weight: 71 kg

DRUGS (7)
  1. MORPHINE [Concomitant]
  2. XARELTO [Suspect]
     Indication: THROMBOSIS PROPHYLAXIS
     Route: 048
     Dates: start: 20110323, end: 20110324
  3. XARELTO [Suspect]
     Route: 048
     Dates: start: 20100101, end: 20100201
  4. KETOPROFEN [Concomitant]
  5. LEVOCETIRIZINE DIHYDROCHLORIDE [Concomitant]
  6. LEVOTHYROXINE SODIUM [Concomitant]
  7. OMEPRAZOLE [Concomitant]

REACTIONS (1)
  - URTICARIA [None]
